FAERS Safety Report 10891981 (Version 2)
Quarter: 2015Q2

REPORT INFORMATION
  Report Type: Report from Study
  Country: US (occurrence: US)
  Receive Date: 20150306
  Receipt Date: 20150626
  Transmission Date: 20150821
  Serious: Yes (Hospitalization)
  Sender: FDA-Public Use
  Company Number: US-PFIZER INC-2014189858

PATIENT
  Age: 45 Year
  Sex: Female
  Weight: 84 kg

DRUGS (21)
  1. VITAMIN D3 [Concomitant]
     Active Substance: CHOLECALCIFEROL
     Indication: SUPPLEMENTATION THERAPY
     Dosage: 4000 IU, DAILY
     Route: 048
     Dates: start: 20140423
  2. PALBOCICLIB [Suspect]
     Active Substance: PALBOCICLIB
     Indication: BREAST CANCER METASTATIC
     Dosage: 125 MG, CYCLIC (ONCE DAILY, 3 WEEKS ON/ 1 WEEK OFF EVERY 28 DAY CYCLE)
     Route: 048
     Dates: start: 20140528, end: 20140707
  3. VALIUM [Concomitant]
     Active Substance: DIAZEPAM
     Indication: ANXIETY
     Dosage: 5 MG, 1 DOSE Q6-8 HRS, AS NEEDED
     Route: 048
     Dates: start: 20130801
  4. LORAZEPAM. [Concomitant]
     Active Substance: LORAZEPAM
     Indication: ANXIETY
     Dosage: 1 MG, Q4-6HRS, AS NEEDED
     Route: 048
     Dates: start: 20130904
  5. IBUPROFEN. [Concomitant]
     Active Substance: IBUPROFEN
     Indication: ARTHRALGIA
     Dosage: 200 MG, EVERY 8 HOURS, AS NEEDED
     Route: 048
     Dates: start: 20130613
  6. CHONDROITIN/GLUCOSAMINE [Concomitant]
     Indication: ARTHRALGIA
     Dosage: 300-375 MG 1 DOSE, AS NEEDED
     Route: 048
     Dates: start: 20130613
  7. TRAMADOL [Concomitant]
     Active Substance: TRAMADOL
     Indication: ARTHRALGIA
     Dosage: 50 MG, Q6H, AS NEEDED
     Route: 048
     Dates: start: 20131120
  8. HYDROCODONE/IBUPROFEN [Concomitant]
     Indication: ARTHRALGIA
     Dosage: 7.5/200 MG 1 DOSE Q4-6 HRS, AS NEEDED
     Route: 048
     Dates: start: 20130801
  9. WELLBUTRIN [Concomitant]
     Active Substance: BUPROPION HYDROCHLORIDE
     Indication: ANXIETY
  10. LETROZOLE. [Suspect]
     Active Substance: LETROZOLE
     Indication: BREAST CANCER METASTATIC
     Dosage: 2.5 MG, ONCE DAILY
     Route: 048
     Dates: start: 20140528
  11. GRANISETRON [Concomitant]
     Active Substance: GRANISETRON
     Indication: NAUSEA
     Dosage: 1 MG, EVERY DAY, AS NEEDED
     Route: 048
     Dates: start: 20131030
  12. ZOFRAN [Concomitant]
     Active Substance: ONDANSETRON HYDROCHLORIDE
     Indication: NAUSEA
     Dosage: 8 MG, Q8H, AS NEEDED
     Route: 048
     Dates: start: 20130801
  13. ALEVE [Concomitant]
     Active Substance: NAPROXEN SODIUM
     Indication: ARTHRALGIA
     Dosage: 220 MG, 2X/DAY
     Route: 048
     Dates: start: 20140624
  14. XANAX [Concomitant]
     Active Substance: ALPRAZOLAM
     Indication: ANXIETY
     Dosage: 0.5 MG, 1 DOSE TID, AS NEEDED
     Route: 048
     Dates: start: 20130904
  15. WELLBUTRIN [Concomitant]
     Active Substance: BUPROPION HYDROCHLORIDE
     Indication: HOT FLUSH
     Dosage: 300 MG, DAILY
     Route: 048
     Dates: start: 20140519
  16. CYCLOBENZAPRINE [Concomitant]
     Active Substance: CYCLOBENZAPRINE
     Indication: BACK PAIN
     Dosage: 10 MG, AS NEEDED
     Route: 048
     Dates: start: 20140624, end: 20140902
  17. COMPAZINE [Concomitant]
     Active Substance: PROCHLORPERAZINE MALEATE
     Indication: NAUSEA
     Dosage: 25 MG, Q12H, AS NEEDED
     Route: 048
     Dates: start: 20130801
  18. CLONAZEPAM. [Concomitant]
     Active Substance: CLONAZEPAM
     Indication: INSOMNIA
     Dosage: 0.5 MG, 3 DOSES QHS, AS NEEDED
     Route: 048
     Dates: start: 20140528
  19. RESTORIL [Concomitant]
     Active Substance: TEMAZEPAM
     Indication: INSOMNIA
     Dosage: 30 MG, 1 DOSE QHS, AS NEEDED
     Route: 048
     Dates: start: 20140528
  20. B6 [Concomitant]
     Active Substance: PYRIDOXINE HYDROCHLORIDE
     Indication: SUPPLEMENTATION THERAPY
     Dosage: 100 MG, 2X/DAY
     Route: 048
     Dates: start: 20140624
  21. VITAMIN B12 [Concomitant]
     Active Substance: CYANOCOBALAMIN
     Indication: SUPPLEMENTATION THERAPY
     Dosage: 1000 MG, DAILY
     Route: 048
     Dates: start: 20140624

REACTIONS (2)
  - Neutrophil count decreased [Recovered/Resolved]
  - Cellulitis [Recovered/Resolved]

NARRATIVE: CASE EVENT DATE: 20140703
